FAERS Safety Report 23344873 (Version 1)
Quarter: 2023Q4

REPORT INFORMATION
  Report Type: Report from Study
  Country: US (occurrence: US)
  Receive Date: 20231228
  Receipt Date: 20231228
  Transmission Date: 20240110
  Serious: Yes (Other)
  Sender: FDA-Public Use
  Company Number: US-TAKEDA-2023TUS123112

PATIENT
  Sex: Male

DRUGS (2)
  1. IXAZOMIB [Suspect]
     Active Substance: IXAZOMIB
     Indication: Plasma cell myeloma
     Dosage: 3 MILLIGRAM
     Route: 048
     Dates: start: 202212
  2. REVLIMID [Concomitant]
     Active Substance: LENALIDOMIDE
     Dosage: 3 MILLIGRAM
     Route: 065

REACTIONS (3)
  - Osteomyelitis [Recovered/Resolved]
  - Nausea [Unknown]
  - Product dose omission issue [Unknown]
